FAERS Safety Report 9275847 (Version 1)
Quarter: 2013Q2

REPORT INFORMATION
  Report Type: Spontaneous
  Country: DE (occurrence: None)
  Receive Date: 20130430
  Receipt Date: 20130430
  Transmission Date: 20140414
  Serious: Yes (Hospitalization, Other)
  Sender: FDA-Public Use
  Company Number: GER/GER/13/0029103

PATIENT
  Age: 48 Year
  Sex: Female

DRUGS (7)
  1. IBUPROFEN [Suspect]
     Indication: PRODUCT USED FOR UNKNOWN INDICATION
     Route: 048
     Dates: start: 20130203
  2. PANTOPRAZOLE [Suspect]
     Indication: PRODUCT USED FOR UNKNOWN INDICATION
     Route: 048
     Dates: start: 20130205, end: 20130207
  3. ABILIFY (ARIPIPRAZOLE) [Suspect]
     Indication: PRODUCT USED FOR UNKNOWN INDICATION
     Dosage: OCCLUSIVE DRESSING TECHNIQUE
     Dates: start: 20130122, end: 20130123
  4. DIPIPERON [Suspect]
     Indication: PRODUCT USED FOR UNKNOWN INDICATION
     Dates: start: 20130204
  5. TAVOR [Suspect]
     Indication: PRODUCT USED FOR UNKNOWN INDICATION
     Dates: start: 20130215
  6. L-THYROXIN [Concomitant]
  7. PROMETHAZINE [Concomitant]

REACTIONS (5)
  - Pruritus [None]
  - Erythema multiforme [None]
  - Dyspnoea [None]
  - Urticaria [None]
  - Dermatitis allergic [None]
